FAERS Safety Report 17279663 (Version 4)
Quarter: 2020Q2

REPORT INFORMATION
  Report Type: Report from Study
  Country: CA (occurrence: CA)
  Receive Date: 20200116
  Receipt Date: 20200422
  Transmission Date: 20200713
  Serious: Yes (Hospitalization)
  Sender: FDA-Public Use
  Company Number: CA-BIOGEN-2019BI00725117

PATIENT
  Age: 49 Year
  Sex: Female

DRUGS (1)
  1. FAMPYRA [Suspect]
     Active Substance: DALFAMPRIDINE
     Indication: GAIT DISTURBANCE
     Route: 048
     Dates: start: 20120920, end: 20200415

REACTIONS (7)
  - Weight decreased [Unknown]
  - Presyncope [Unknown]
  - Gait disturbance [Recovered/Resolved]
  - Therapeutic product effect decreased [Unknown]
  - Intentional dose omission [Not Recovered/Not Resolved]
  - Psychotic disorder [Unknown]
  - Therapy non-responder [Unknown]

NARRATIVE: CASE EVENT DATE: 2016
